FAERS Safety Report 4570184-3 (Version None)
Quarter: 2005Q1

REPORT INFORMATION
  Report Type: 
  Country: None (occurrence: None)
  Receive Date: 20050204
  Receipt Date: 20041220
  Transmission Date: 20050727
  Serious: Yes (Hospitalization)
  Sender: FDA-Public Use
  Company Number: 200412850DE

PATIENT
  Age: 63 Year
  Sex: Male

DRUGS (7)
  1. ENOXAPARIN SODIUM [Suspect]
     Indication: CORONARY ARTERY DISEASE
     Route: 042
     Dates: start: 20041104, end: 20041104
  2. ENOXAPARIN SODIUM [Suspect]
     Indication: CORONARY ARTERY DISEASE
     Route: 042
     Dates: start: 20041105, end: 20041105
  3. ASPIRIN [Concomitant]
     Indication: CORONARY ARTERY DISEASE
     Route: 048
  4. PLAVIX [Concomitant]
     Indication: CORONARY ARTERY DISEASE
     Route: 048
  5. CARVEDILOL [Concomitant]
     Indication: CORONARY ARTERY DISEASE
     Route: 048
  6. ATORVASTATIN [Concomitant]
     Indication: CORONARY ARTERY DISEASE
     Route: 048
  7. CO-DIOVAN [Concomitant]
     Indication: CORONARY ARTERY DISEASE
     Route: 048

REACTIONS (3)
  - ARTERIOVENOUS FISTULA [None]
  - PAIN [None]
  - POST PROCEDURAL COMPLICATION [None]
